FAERS Safety Report 14447863 (Version 1)
Quarter: 2018Q1

REPORT INFORMATION
  Report Type: Spontaneous
  Country: CZ (occurrence: CZ)
  Receive Date: 20180126
  Receipt Date: 20180126
  Transmission Date: 20180509
  Serious: Yes (Death)
  Sender: FDA-Public Use
  Company Number: PHHY2018CZ011464

PATIENT
  Age: 55 Year
  Sex: Male

DRUGS (1)
  1. CLINDAMYCIN. [Suspect]
     Active Substance: CLINDAMYCIN
     Indication: TOXOPLASMOSIS
     Route: 065

REACTIONS (3)
  - Shock [Fatal]
  - Myocarditis [Fatal]
  - Immunosuppression [Fatal]
